FAERS Safety Report 25096142 (Version 1)
Quarter: 2025Q1

REPORT INFORMATION
  Report Type: Report from Study
  Country: CA (occurrence: CA)
  Receive Date: 20250319
  Receipt Date: 20250319
  Transmission Date: 20250409
  Serious: Yes (Hospitalization)
  Sender: ABBVIE
  Company Number: CA-ABBVIE-6180253

PATIENT
  Sex: Female

DRUGS (1)
  1. RINVOQ [Suspect]
     Active Substance: UPADACITINIB
     Indication: Rheumatoid arthritis
     Dosage: FORM STRENGTH 15 MILLIGRAM, 1 TABLET
     Route: 048

REACTIONS (6)
  - Neurological symptom [Unknown]
  - Facial paresis [Unknown]
  - Coordination abnormal [Unknown]
  - Dysmetria [Unknown]
  - Quadrantanopia [Unknown]
  - Bell^s palsy [Unknown]
